FAERS Safety Report 10462107 (Version 1)
Quarter: 2014Q3

REPORT INFORMATION
  Report Type: Spontaneous
  Country: US (occurrence: US)
  Receive Date: 20140918
  Receipt Date: 20140918
  Transmission Date: 20150326
  Serious: No
  Sender: FDA-Public Use
  Company Number: US-GE HEALTHCARE MEDICAL DIAGNOSTICS-M123-PR-1406S-0007

PATIENT
  Age: 66 Year
  Sex: Female

DRUGS (3)
  1. ADREVIEW [Suspect]
     Active Substance: IOBENGUANE I-123
     Indication: DIAGNOSTIC PROCEDURE
  2. ADREVIEW [Suspect]
     Active Substance: IOBENGUANE I-123
     Indication: PHAEOCHROMOCYTOMA
     Route: 042
     Dates: start: 20140603, end: 20140603
  3. ADREVIEW [Suspect]
     Active Substance: IOBENGUANE I-123
     Indication: ADRENAL GLAND CANCER

REACTIONS (1)
  - Fluid retention [Not Recovered/Not Resolved]

NARRATIVE: CASE EVENT DATE: 20140603
